FAERS Safety Report 16036627 (Version 2)
Quarter: 2019Q1

REPORT INFORMATION
  Report Type: Spontaneous
  Country: FR (occurrence: FR)
  Receive Date: 20190305
  Receipt Date: 20190327
  Transmission Date: 20190418
  Serious: Yes (Other)
  Sender: FDA-Public Use
  Company Number: FR-TEVA-2019-FR-1018154

PATIENT
  Age: 43 Year
  Sex: Male
  Weight: 48.6 kg

DRUGS (2)
  1. PAMIDRONATE DE SODIUM [Suspect]
     Active Substance: PAMIDRONATE DISODIUM
     Indication: HYPERCALCAEMIA
     Route: 041
     Dates: start: 20190131, end: 20190131
  2. XATRAL LP 10 MG, COMPRIM? ? LIB?RATION PROLONG?E [Suspect]
     Active Substance: ALFUZOSIN
     Indication: URINARY RETENTION
     Dosage: 1 DOSAGE FORMS DAILY;
     Route: 048
     Dates: start: 20190126, end: 20190131

REACTIONS (3)
  - Dyspnoea [Recovered/Resolved]
  - Urticaria [Recovered/Resolved]
  - Hypotension [Recovered/Resolved]

NARRATIVE: CASE EVENT DATE: 20190131
